FAERS Safety Report 15282359 (Version 2)
Quarter: 2019Q3

REPORT INFORMATION
  Report Type: Spontaneous
  Country: US (occurrence: US)
  Receive Date: 20180816
  Receipt Date: 20190812
  Transmission Date: 20191004
  Serious: Yes (Hospitalization, Other)
  Sender: FDA-Public Use
  Company Number: US-SUN PHARMACEUTICAL INDUSTRIES LTD-2018US-181395

PATIENT
  Age: 58 Year
  Sex: Female

DRUGS (1)
  1. METHOTREXATE. [Suspect]
     Active Substance: METHOTREXATE
     Indication: RHEUMATOID ARTHRITIS
     Dosage: 15 MG WEEKLY
     Route: 048

REACTIONS (6)
  - Hypercalcaemia [Recovered/Resolved]
  - Respiratory failure [Recovering/Resolving]
  - Acute kidney injury [Unknown]
  - Pulmonary toxicity [Unknown]
  - Normocytic anaemia [Unknown]
  - Pneumonitis [Recovering/Resolving]
